FAERS Safety Report 8457097-1 (Version None)
Quarter: 2012Q2

REPORT INFORMATION
  Report Type: 
  Country: None (occurrence: None)
  Receive Date: 20120614
  Receipt Date: 20120606
  Transmission Date: 20120825
  Serious: Yes (Other)
  Sender: FDA-Public Use
  Company Number: US-2012-10696

PATIENT
  Age: 4 Year
  Sex: Male

DRUGS (5)
  1. FLUDARABINE PHOSPHATE [Suspect]
     Indication: PROPHYLAXIS AGAINST TRANSPLANT REJECTION
  2. ATGAM [Suspect]
     Indication: PROPHYLAXIS AGAINST TRANSPLANT REJECTION
  3. BUSULFAN [Suspect]
     Indication: PROPHYLAXIS AGAINST TRANSPLANT REJECTION
  4. CYCLOPHOSPHAMIDE [Suspect]
     Indication: PROPHYLAXIS AGAINST TRANSPLANT REJECTION
  5. THIOTEPA [Suspect]
     Indication: PROPHYLAXIS AGAINST TRANSPLANT REJECTION

REACTIONS (8)
  - ASCITES [None]
  - OEDEMA PERIPHERAL [None]
  - WEIGHT INCREASED [None]
  - PERICARDIAL EFFUSION [None]
  - PERIORBITAL OEDEMA [None]
  - POLYSEROSITIS [None]
  - PLEURAL EFFUSION [None]
  - GENERALISED OEDEMA [None]
